FAERS Safety Report 4621536-4 (Version None)
Quarter: 2005Q1

REPORT INFORMATION
  Report Type: 
  Country: None (occurrence: None)
  Receive Date: 20050328
  Receipt Date: 20031125
  Transmission Date: 20050727
  Serious: No
  Sender: FDA-Public Use
  Company Number: 10099

PATIENT
  Age: 64 Year
  Sex: Female

DRUGS (2)
  1. METHOTREXATE [Suspect]
     Dosage: 7.5 MG WEEKLY; SEE IMAGE
     Dates: start: 20010701, end: 20011001
  2. METHOTREXATE [Suspect]
     Dosage: 7.5 MG WEEKLY; SEE IMAGE
     Dates: start: 20020101, end: 20020101

REACTIONS (2)
  - FACIAL PARESIS [None]
  - NAUSEA [None]
